FAERS Safety Report 9467414 (Version 1)
Quarter: 2013Q3

REPORT INFORMATION
  Report Type: Spontaneous
  Country: US (occurrence: None)
  Receive Date: 20130819
  Receipt Date: 20130819
  Transmission Date: 20140515
  Serious: Yes (Hospitalization)
  Sender: FDA-Public Use
  Company Number: None

PATIENT
  Age: 62 Year
  Sex: Male

DRUGS (2)
  1. DILANTIN [Suspect]
     Indication: EPILEPSY
     Dates: start: 1972, end: 1982
  2. MYSOLINE [Suspect]
     Indication: EPILEPSY
     Dates: start: 1972, end: 1982

REACTIONS (2)
  - Convulsion [None]
  - Toxicity to various agents [None]
